FAERS Safety Report 11077970 (Version 1)
Quarter: 2015Q2

REPORT INFORMATION
  Report Type: Spontaneous
  Country: US (occurrence: None)
  Receive Date: 20150429
  Receipt Date: 20150429
  Transmission Date: 20150821
  Serious: No
  Sender: FDA-Public Use
  Company Number: None

PATIENT
  Age: 71 Year
  Sex: Female
  Weight: 72.12 kg

DRUGS (16)
  1. POTASSIUM CHLORIDE. [Concomitant]
     Active Substance: POTASSIUM CHLORIDE
  2. CYMBALTA [Concomitant]
     Active Substance: DULOXETINE HYDROCHLORIDE
  3. COENZYME Q10 [Concomitant]
     Active Substance: UBIDECARENONE
  4. CLONAZEPAM. [Concomitant]
     Active Substance: CLONAZEPAM
  5. HYDROCODONE ^5-325^ [Concomitant]
     Active Substance: HYDROCODONE
  6. ZETIA [Concomitant]
     Active Substance: EZETIMIBE
  7. CALCIUM [Concomitant]
     Active Substance: CALCIUM
     Dosage: 2 1/2 PER DAY
  8. FLONASE [Concomitant]
     Active Substance: FLUTICASONE PROPIONATE
     Dosage: 2 SPRAYS EACH NOSTRIL
     Route: 045
  9. MULTI-VIT [Concomitant]
     Active Substance: VITAMINS
     Dosage: 1-3 TIMES PER WEEK
  10. MIRALAX [Concomitant]
     Active Substance: POLYETHYLENE GLYCOL 3350
  11. LASIX [Concomitant]
     Active Substance: FUROSEMIDE
  12. PROBIOTIC [Concomitant]
     Active Substance: PROBIOTICS NOS
     Dosage: 2 PER DAY
  13. LIPITOR [Suspect]
     Active Substance: ATORVASTATIN CALCIUM
     Indication: BLOOD CHOLESTEROL INCREASED
     Dosage: 1 TAB EVE.
     Route: 048
     Dates: start: 20140918, end: 20140924
  14. PEMGABAPENTIN [Concomitant]
  15. PLAVIX [Concomitant]
     Active Substance: CLOPIDOGREL BISULFATE
  16. OMEPRAZOLE. [Concomitant]
     Active Substance: OMEPRAZOLE

REACTIONS (2)
  - Paralysis [None]
  - Posture abnormal [None]

NARRATIVE: CASE EVENT DATE: 20140925
